FAERS Safety Report 5397650-5 (Version None)
Quarter: 2007Q3

REPORT INFORMATION
  Report Type: 
  Country: None (occurrence: None)
  Receive Date: 20070723
  Receipt Date: 20070723
  Transmission Date: 20080115
  Serious: No
  Sender: FDA-Public Use
  Company Number: None

PATIENT
  Age: 73 Year
  Sex: Male

DRUGS (12)
  1. ALENDRONATE SODIUM [Suspect]
     Indication: OSTEOPOROSIS
     Dosage: 70MG WEEKLY PO
     Route: 048
     Dates: start: 20070512, end: 20070523
  2. APAP TAB [Concomitant]
  3. RAMIPRIL [Concomitant]
  4. VERAPAMIL [Concomitant]
  5. COLACE [Concomitant]
  6. SIMVASTATIN [Concomitant]
  7. PHENYTOIN [Concomitant]
  8. FERROUS SULFATE [Concomitant]
  9. ASCORBIC ACID [Concomitant]
  10. PLAVIX [Concomitant]
  11. RABEPRAZOLE SODIUM [Concomitant]
  12. COMBIVENT MDI [Concomitant]

REACTIONS (3)
  - ANAEMIA [None]
  - GASTROINTESTINAL HAEMORRHAGE [None]
  - OESOPHAGITIS [None]
